FAERS Safety Report 10233419 (Version 2)
Quarter: 2014Q2

REPORT INFORMATION
  Report Type: Spontaneous
  Country: US (occurrence: US)
  Receive Date: 20140612
  Receipt Date: 20140627
  Transmission Date: 20141212
  Serious: Yes (Death)
  Sender: FDA-Public Use
  Company Number: US-JNJFOC-20140606438

PATIENT
  Age: 64 Year
  Sex: Female

DRUGS (3)
  1. OLYSIO [Suspect]
     Indication: HEPATITIS C
     Route: 065
     Dates: start: 201405
  2. SOVALDI [Suspect]
     Indication: HEPATITIS C
     Route: 065
     Dates: start: 201405
  3. RIBAVIRIN [Suspect]
     Indication: HEPATITIS C
     Route: 065
     Dates: start: 201405

REACTIONS (2)
  - Death [Fatal]
  - Off label use [Unknown]
